FAERS Safety Report 7035413-5 (Version None)
Quarter: 2010Q4

REPORT INFORMATION
  Report Type: 
  Country: None (occurrence: None)
  Receive Date: 20101008
  Receipt Date: 20100927
  Transmission Date: 20110411
  Serious: Yes (Death, Other)
  Sender: FDA-Public Use
  Company Number: SE-PFIZER INC-2010093086

PATIENT
  Age: 21 Year
  Sex: Male

DRUGS (8)
  1. LYRICA [Suspect]
     Indication: GENITAL PAIN
     Dosage: 600 MG, DAILY
     Route: 048
  2. ATARAX [Suspect]
     Indication: ANXIETY DISORDER
     Dosage: 125 MG, DAILY
     Route: 048
     Dates: start: 20100101
  3. CYMBALTA [Concomitant]
     Dosage: UNK
  4. PROPAVAN [Concomitant]
     Dosage: UNK
     Dates: start: 20100101
  5. NITRAZEPAM [Concomitant]
     Dosage: UNK
     Dates: start: 20100101
  6. OXASCAND [Concomitant]
     Dosage: UNK
     Dates: start: 20100101
  7. VALPROATE SODIUM [Concomitant]
     Dosage: UNK
     Dates: start: 20100101
  8. ZYPREXA [Concomitant]
     Dosage: UNK
     Dates: start: 20100101

REACTIONS (1)
  - DRUG TOXICITY [None]
